FAERS Safety Report 11629034 (Version 3)
Quarter: 2016Q4

REPORT INFORMATION
  Report Type: Report from Study
  Country: None (occurrence: HU)
  Receive Date: 20151014
  Receipt Date: 20161130
  Transmission Date: 20170206
  Serious: Yes (Hospitalization)
  Sender: FDA-Public Use
  Company Number: HU-ABBVIE-15P-076-1479037-00

PATIENT
  Age: 70 Year
  Sex: Male

DRUGS (7)
  1. VIEKIRAX [Suspect]
     Active Substance: OMBITASVIR\PARITAPREVIR\RITONAVIR
     Indication: HEPATITIS C
     Dosage: 12.5/75/50MG; 2 TABLETS AT A TIME
     Route: 048
     Dates: start: 20150623, end: 20151010
  2. CLOPIDOGREL (KERBERAN) [Concomitant]
     Indication: ANTIPLATELET THERAPY
     Route: 048
     Dates: start: 2012
  3. VINPOCETIN (CABINTORN FORTE) [Concomitant]
     Indication: CEREBRAL INFARCTION
     Dates: start: 2005
  4. SPIRONOLACTONE (SPIRON) [Concomitant]
     Indication: DIURETIC THERAPY
     Route: 048
     Dates: start: 2012
  5. EXVIERA [Suspect]
     Active Substance: DASABUVIR
     Indication: HEPATITIS C
     Route: 048
     Dates: start: 20150623, end: 20151010
  6. MODERIBA [Suspect]
     Active Substance: RIBAVIRIN
     Indication: HEPATITIS C
     Route: 048
     Dates: start: 20150623
  7. PROPRANOLOL [Concomitant]
     Active Substance: PROPRANOLOL\PROPRANOLOL HYDROCHLORIDE
     Indication: HYPERTENSION
     Route: 048
     Dates: start: 2012

REACTIONS (2)
  - Renal failure [Recovered/Resolved]
  - Asphyxia [Recovered/Resolved]

NARRATIVE: CASE EVENT DATE: 201506
